FAERS Safety Report 12370754 (Version 1)
Quarter: 2016Q2

REPORT INFORMATION
  Report Type: Spontaneous
  Country: FR (occurrence: TG)
  Receive Date: 20160516
  Receipt Date: 20160516
  Transmission Date: 20160815
  Serious: Yes (Other)
  Sender: FDA-Public Use
  Company Number: FR-CIPLA LTD.-2016FR04930

PATIENT

DRUGS (13)
  1. EFAVIRENZ [Suspect]
     Active Substance: EFAVIRENZ
     Indication: PERINATAL HIV INFECTION
     Dosage: UNK
     Route: 065
  2. LOPINAVIR/RITONAVIR [Suspect]
     Active Substance: LOPINAVIR\RITONAVIR
     Indication: PERINATAL HIV INFECTION
     Dosage: UNK
     Route: 065
  3. ETRAVIRINE [Suspect]
     Active Substance: ETRAVIRINE
     Indication: PERINATAL HIV INFECTION
     Dosage: UNK
     Route: 065
  4. ABACAVIR. [Suspect]
     Active Substance: ABACAVIR
     Indication: PERINATAL HIV INFECTION
     Dosage: UNK
     Route: 065
  5. TENOFOVIR [Suspect]
     Active Substance: TENOFOVIR
     Indication: PERINATAL HIV INFECTION
     Dosage: UNK
     Route: 065
  6. RILPIVIRINE [Suspect]
     Active Substance: RILPIVIRINE
     Indication: PERINATAL HIV INFECTION
     Dosage: UNK
     Route: 065
  7. ZIDOVUDINE. [Suspect]
     Active Substance: ZIDOVUDINE
     Indication: PERINATAL HIV INFECTION
     Dosage: UNK
     Route: 065
  8. LAMIVUDINE. [Suspect]
     Active Substance: LAMIVUDINE
     Indication: PERINATAL HIV INFECTION
     Dosage: UNK
     Route: 065
  9. EMTRICITABINE [Suspect]
     Active Substance: EMTRICITABINE
     Indication: PERINATAL HIV INFECTION
     Dosage: UNK
     Route: 065
  10. DIDANOSINE. [Suspect]
     Active Substance: DIDANOSINE
     Indication: PERINATAL HIV INFECTION
     Dosage: UNK
     Route: 065
  11. NEVIRAPINE. [Suspect]
     Active Substance: NEVIRAPINE
     Indication: PERINATAL HIV INFECTION
     Dosage: UNK
     Route: 065
  12. STAVUDINE. [Suspect]
     Active Substance: STAVUDINE
     Indication: PERINATAL HIV INFECTION
     Dosage: UNK
     Route: 065
  13. ATAZANAVIR/RITONAVIR [Suspect]
     Active Substance: ATAZANAVIR\RITONAVIR
     Indication: PERINATAL HIV INFECTION
     Dosage: UNK
     Route: 065

REACTIONS (2)
  - Virologic failure [Unknown]
  - Drug resistance [Unknown]
